FAERS Safety Report 9008525 (Version 1)
Quarter: 2013Q1

REPORT INFORMATION
  Report Type: Spontaneous
  Country: US (occurrence: US)
  Receive Date: 20130111
  Receipt Date: 20130111
  Transmission Date: 20140127
  Serious: Yes (Congenital Anomaly)
  Sender: FDA-Public Use
  Company Number: US-009507513-1301USA002983

PATIENT
  Age: 4 Month
  Sex: Male

DRUGS (1)
  1. NUVARING [Suspect]
     Indication: CONTRACEPTION
     Route: 063

REACTIONS (2)
  - Penis disorder [Unknown]
  - Exposure during breast feeding [Unknown]
